FAERS Safety Report 13616016 (Version 1)
Quarter: 2017Q2

REPORT INFORMATION
  Report Type: Spontaneous
  Country: FR (occurrence: FR)
  Receive Date: 20170606
  Receipt Date: 20170606
  Transmission Date: 20170830
  Serious: Yes (Hospitalization)
  Sender: FDA-Public Use
  Company Number: FR-ACCORD-052337

PATIENT
  Age: 69 Year
  Sex: Female

DRUGS (18)
  1. SINTROM [Suspect]
     Active Substance: ACENOCOUMAROL
     Indication: ATRIAL FIBRILLATION
     Dosage: STRENGTH: 4 MG, DOSAGE FORM: TABLET QUADRISCABLE
     Route: 048
     Dates: start: 2012, end: 20170227
  2. SIMVASTATIN. [Concomitant]
     Active Substance: SIMVASTATIN
     Dosage: STRENGTH: 20 MG, ONE-HALF TABLET DAILY IN THE EVENING
     Dates: start: 2014
  3. SPIRONOLACTONE. [Concomitant]
     Active Substance: SPIRONOLACTONE
     Dosage: STRENGTH: 50 MG
  4. DEXCHLORPHENIRAMINE [Concomitant]
     Active Substance: DEXCHLORPHENIRAMINE
     Indication: PREMEDICATION
     Dosage: ON DAY 1 (26-JAN-2017) AND DAY 2 (27-JAN-2017)
  5. ZELITREX [Concomitant]
     Active Substance: VALACYCLOVIR HYDROCHLORIDE
     Dosage: STRENGTH: 500 MG, IN THE MORNING AND IN THE EVENING
     Dates: start: 201610
  6. BACTRIM [Concomitant]
     Active Substance: SULFAMETHOXAZOLE\TRIMETHOPRIM
     Dates: start: 20170130
  7. BENDAMUSTINE ACCORD [Suspect]
     Active Substance: BENDAMUSTINE
     Indication: CHRONIC LYMPHOCYTIC LEUKAEMIA
     Dosage: AT THE POSOLOGY OF 90 MG/M2 (EQUIVALENT TO 142.5 MG) ON DAY 02 (27-JAN-2017) AND DAY03 (28-JAN-2017)
     Route: 042
     Dates: start: 20170126
  8. PROPRANOLOL/PROPRANOLOL HYDROCHLORIDE/PROPRANOLOL PH ENOBARBITAL [Suspect]
     Active Substance: PROPRANOLOL HYDROCHLORIDE
     Indication: HYPERTENSION
     Dosage: STRENGTH: 40 MG, IN THE MORNING, AT NOON AND IN THE EVENING (120 MG DAILY)
     Route: 048
     Dates: end: 20170227
  9. RITUXIMAB [Concomitant]
     Active Substance: RITUXIMAB
     Dosage: 50 MG/M2 (EQUIVALENT TO 80 MG) ON DAY 01 (26-JAN-2017)
  10. ZOPHREN [Concomitant]
     Active Substance: ONDANSETRON
     Indication: PREMEDICATION
  11. PRIMPERAN [Concomitant]
     Active Substance: METOCLOPRAMIDE HYDROCHLORIDE
     Indication: PREMEDICATION
  12. SULFAMETHOXAZOLE/TRIMETHOPRIM [Concomitant]
     Dates: start: 20170125, end: 20170130
  13. PARACETAMOL [Concomitant]
     Active Substance: ACETAMINOPHEN
     Indication: PREMEDICATION
  14. KARDEGIC [Concomitant]
     Active Substance: ASPIRIN LYSINE
     Dosage: STRENGTH: 75 MG, IN THE MORNING
     Dates: start: 20170227
  15. INEXIUM [Concomitant]
     Active Substance: ESOMEPRAZOLE
     Dosage: STRENGTH: 20 MG, IN THE MORNING
     Dates: start: 2013
  16. SOLUPRED [Concomitant]
     Active Substance: PREDNISOLONE
     Dosage: STRENGTH: 20 MG, IN THE MORNING
  17. METHYLPREDNISOLONE. [Concomitant]
     Active Substance: METHYLPREDNISOLONE
     Indication: PREMEDICATION
     Dosage: STRENGTH: 100MG
  18. FASTURTEC [Concomitant]
     Active Substance: RASBURICASE
     Indication: TUMOUR LYSIS SYNDROME
     Dates: start: 20170126

REACTIONS (1)
  - Reticulocytopenia [Recovered/Resolved]

NARRATIVE: CASE EVENT DATE: 20170227
